FAERS Safety Report 4278971-6 (Version None)
Quarter: 2004Q1

REPORT INFORMATION
  Report Type: 
  Country: None (occurrence: None)
  Receive Date: 20040122
  Receipt Date: 20040122
  Transmission Date: 20041129
  Serious: Yes (Other)
  Sender: FDA-Public Use
  Company Number: None

PATIENT
  Age: 59 Year
  Sex: Male
  Weight: 98 kg

DRUGS (1)
  1. EZETIMIBE [Suspect]
     Indication: LIPIDS
     Dosage: 10 MG QD

REACTIONS (1)
  - MYALGIA [None]
